FAERS Safety Report 20469874 (Version 1)
Quarter: 2022Q1

REPORT INFORMATION
  Report Type: Spontaneous
  Country: DE (occurrence: DE)
  Receive Date: 20220214
  Receipt Date: 20220214
  Transmission Date: 20220423
  Serious: Yes (Other)
  Sender: FDA-Public Use
  Company Number: DE-TAKEDA-2022TUS009252

PATIENT
  Age: 68 Year
  Sex: Male
  Weight: 76 kg

DRUGS (5)
  1. ENTYVIO [Suspect]
     Active Substance: VEDOLIZUMAB
     Indication: Colitis ulcerative
     Dosage: UNK
     Route: 058
     Dates: start: 20220112
  2. ENTYVIO [Suspect]
     Active Substance: VEDOLIZUMAB
     Dosage: UNK
     Route: 058
     Dates: start: 20220126
  3. PREDNISONE [Concomitant]
     Active Substance: PREDNISONE
     Dosage: 20 MILLIGRAM
     Dates: start: 20220202
  4. Spasmex [Concomitant]
     Dosage: 15 GRAM, QD
     Dates: start: 20220121, end: 20220206
  5. MESALAMINE [Concomitant]
     Active Substance: MESALAMINE
     Indication: Colitis ulcerative
     Dosage: 2 GRAM, QD
     Dates: start: 2019

REACTIONS (3)
  - Rash pruritic [Unknown]
  - Swelling face [Unknown]
  - Lip swelling [Unknown]

NARRATIVE: CASE EVENT DATE: 20220115
